FAERS Safety Report 18723664 (Version 1)
Quarter: 2021Q1

REPORT INFORMATION
  Report Type: Spontaneous
  Country: US (occurrence: US)
  Receive Date: 20210108
  Receipt Date: 20210108
  Transmission Date: 20210419
  Serious: No
  Sender: FDA-Public Use
  Company Number: None

PATIENT
  Age: 58 Year
  Sex: Female
  Weight: 75.15 kg

DRUGS (1)
  1. ROZLYTREK [Suspect]
     Active Substance: ENTRECTINIB
     Indication: COLON CANCER
     Route: 048
     Dates: start: 20210104

REACTIONS (6)
  - Abdominal pain upper [None]
  - Ageusia [None]
  - Peripheral swelling [None]
  - Renal pain [None]
  - Fatigue [None]
  - Nausea [None]

NARRATIVE: CASE EVENT DATE: 20210108
